FAERS Safety Report 25082070 (Version 2)
Quarter: 2025Q1

REPORT INFORMATION
  Report Type: Spontaneous
  Country: CN (occurrence: CN)
  Receive Date: 20250317
  Receipt Date: 20250321
  Transmission Date: 20250408
  Serious: Yes (Life-Threatening, Hospitalization, Other)
  Sender: JIANGSU HANSOH PHARMACEUTICAL
  Company Number: CN-Jiangsu Hansoh Pharmaceutical Co., Ltd-2173026

PATIENT
  Age: 58 Year
  Sex: Male
  Weight: 51 kg

DRUGS (2)
  1. GEMCITABINE HYDROCHLORIDE [Suspect]
     Active Substance: GEMCITABINE HYDROCHLORIDE
     Indication: Small intestine carcinoma
     Dates: start: 20250214, end: 20250214
  2. PACLITAXEL [Suspect]
     Active Substance: PACLITAXEL
     Dates: start: 20250214, end: 20250214

REACTIONS (2)
  - Myelosuppression [Recovering/Resolving]
  - Off label use [Unknown]

NARRATIVE: CASE EVENT DATE: 20250217
